FAERS Safety Report 16119454 (Version 2)
Quarter: 2019Q2

REPORT INFORMATION
  Report Type: Report from Study
  Country: US (occurrence: US)
  Receive Date: 20190326
  Receipt Date: 20190430
  Transmission Date: 20190711
  Serious: Yes (Death, Other)
  Sender: FDA-Public Use
  Company Number: US-GILEAD-2019-0398535

PATIENT
  Age: 55 Year
  Sex: Male

DRUGS (13)
  1. TAMSULOSIN [Concomitant]
     Active Substance: TAMSULOSIN
  2. FUROSEMIDE. [Concomitant]
     Active Substance: FUROSEMIDE
  3. MULTIVITAMIN + MINERAL [Concomitant]
     Active Substance: MINERALS\VITAMINS
  4. GLUCOSAMINE SULFATE [Concomitant]
     Active Substance: GLUCOSAMINE SULFATE
  5. ALBUTEROL HFA [Concomitant]
     Active Substance: ALBUTEROL SULFATE
  6. PREDNISONE. [Concomitant]
     Active Substance: PREDNISONE
  7. SULFAMETHOXAZOLE AND TRIMETHOPRIM [Concomitant]
     Active Substance: SULFAMETHOXAZOLE\TRIMETHOPRIM
  8. IPRATROPIUM [Concomitant]
     Active Substance: IPRATROPIUM
  9. VALSARTAN. [Concomitant]
     Active Substance: VALSARTAN
  10. LEDIPASVIR/SOFOSBUVIR [Suspect]
     Active Substance: LEDIPASVIR\SOFOSBUVIR
     Indication: HEPATITIS C
     Dosage: UNK
     Route: 065
     Dates: start: 20171010, end: 20180110
  11. SPIRONOLACTONE. [Concomitant]
     Active Substance: SPIRONOLACTONE
  12. ASCORBIC ACID. [Concomitant]
     Active Substance: ASCORBIC ACID
  13. IRON [Concomitant]
     Active Substance: IRON

REACTIONS (1)
  - Chronic respiratory failure [Fatal]
